FAERS Safety Report 8507290-4 (Version None)
Quarter: 2012Q3

REPORT INFORMATION
  Report Type: 
  Country: None (occurrence: None)
  Receive Date: 20120712
  Receipt Date: 20120703
  Transmission Date: 20120928
  Serious: Yes (Other)
  Sender: FDA-Public Use
  Company Number: GB-ROCHE-1084036

PATIENT
  Sex: Female

DRUGS (2)
  1. ZELBORAF [Suspect]
     Indication: MALIGNANT MELANOMA
  2. PHENYTOIN SODIUM [Interacting]
     Indication: NERVOUS SYSTEM DISORDER

REACTIONS (2)
  - DRUG INTERACTION [None]
  - CONVULSION [None]
